FAERS Safety Report 9966782 (Version 2)
Quarter: 2014Q1

REPORT INFORMATION
  Report Type: Spontaneous
  Country: US (occurrence: US)
  Receive Date: 20140305
  Receipt Date: 20140328
  Transmission Date: 20141002
  Serious: Yes (Hospitalization)
  Sender: FDA-Public Use
  Company Number: US-FRI-1000060256

PATIENT
  Age: 63 Year
  Sex: Female
  Weight: 54.5 kg

DRUGS (13)
  1. LINZESS [Suspect]
     Indication: CONSTIPATION
     Dosage: 290MCG
     Route: 048
     Dates: start: 20131016, end: 20131022
  2. CYCLOBENZAPRINE [Concomitant]
     Dosage: 20MG AT BEDTIME
     Route: 048
  3. DULOXETINE [Concomitant]
     Dosage: 30MG
     Route: 048
  4. FENTANYL [Concomitant]
     Dosage: 25MCG/HR PATCH Q72HRS
  5. HYDROXYCHLOROQUINE [Concomitant]
     Dosage: 200MG BID
     Route: 048
  6. LANSOPRAZOLE [Concomitant]
     Dosage: 30MG BID
     Route: 048
  7. LEFLUNOMIDE [Concomitant]
     Dosage: 10MG
     Route: 048
  8. LISINOPRIL [Concomitant]
     Dosage: 5MG BID
     Route: 048
  9. PILOCARBINE [Concomitant]
     Dosage: 5MG TID
     Route: 048
  10. PREDNISONE [Concomitant]
     Route: 048
  11. PROPRANOLOL [Concomitant]
     Route: 048
  12. SUCRALFATE [Concomitant]
     Dosage: 1G BEFORE MEALS AND AT BEDTIME
  13. MAXZIDE-25 [Concomitant]
     Dosage: DAILY
     Route: 048

REACTIONS (2)
  - Rectal prolapse [Recovered/Resolved]
  - Colitis [Unknown]
